FAERS Safety Report 15663700 (Version 1)
Quarter: 2018Q4

REPORT INFORMATION
  Report Type: Spontaneous
  Country: US (occurrence: US)
  Receive Date: 20181128
  Receipt Date: 20181128
  Transmission Date: 20190205
  Serious: Yes (Life-Threatening, Hospitalization, Other)
  Sender: FDA-Public Use
  Company Number: US-TEVA-2018-US-980529

PATIENT
  Age: 6 Decade
  Sex: Female

DRUGS (8)
  1. LORAZEPAM. [Concomitant]
     Active Substance: LORAZEPAM
     Indication: BACK PAIN
     Route: 065
     Dates: start: 2016
  2. OXYCODONE [Suspect]
     Active Substance: OXYCODONE
     Indication: BACK PAIN
     Dosage: 60 MILLIGRAM DAILY; 4 TIMES A DAY; 90MG OF MORPHINE EQUIVALENT DAILY DOSE (MEDD)
     Route: 065
  3. HYDROMORPHONE [Suspect]
     Active Substance: HYDROMORPHONE
     Indication: BACK PAIN
     Dosage: INTRATHECAL PUMP
     Route: 037
  4. BACLOFEN. [Concomitant]
     Active Substance: BACLOFEN
     Indication: BACK PAIN
     Dosage: INTRATHECAL PUMP
     Route: 037
  5. CARISOPRODOL. [Concomitant]
     Active Substance: CARISOPRODOL
     Indication: BACK PAIN
     Route: 065
     Dates: start: 2016
  6. OXYCODONE [Suspect]
     Active Substance: OXYCODONE
     Indication: BACK PAIN
     Dosage: FURTHER, THE DOSE INCREASED TO 1620MG MEDD AND CONTINUED
     Route: 065
     Dates: start: 2016
  7. OXYCODONE [Suspect]
     Active Substance: OXYCODONE
     Indication: BACK PAIN
     Dosage: DOSE HAD ESCALATED NEARLY 9-FOLD TO 780MG MEDD
     Route: 065
     Dates: start: 2000
  8. HYDROMORPHONE [Suspect]
     Active Substance: HYDROMORPHONE
     Indication: BACK PAIN
     Route: 048

REACTIONS (7)
  - Narcotic bowel syndrome [Recovering/Resolving]
  - Walking aid user [Unknown]
  - Mobility decreased [Unknown]
  - Respiratory failure [Recovering/Resolving]
  - Staphylococcal infection [Unknown]
  - Overdose [Recovering/Resolving]
  - Drug dependence [Recovering/Resolving]
